APPROVED DRUG PRODUCT: CROLOM
Active Ingredient: CROMOLYN SODIUM
Strength: 4%
Dosage Form/Route: SOLUTION/DROPS;OPHTHALMIC
Application: A074443 | Product #001
Applicant: BAUSCH AND LOMB PHARMACEUTICALS INC
Approved: Jan 30, 1995 | RLD: No | RS: No | Type: DISCN